FAERS Safety Report 22346295 (Version 1)
Quarter: 2023Q2

REPORT INFORMATION
  Report Type: Spontaneous
  Country: US (occurrence: US)
  Receive Date: 20230519
  Receipt Date: 20230519
  Transmission Date: 20230721
  Serious: Yes (Hospitalization, Disabling, Other)
  Sender: FDA-Public Use
  Company Number: US-TEVA-2023-US-2888427

PATIENT
  Age: 65 Year
  Sex: Female

DRUGS (2)
  1. DIAZEPAM [Suspect]
     Active Substance: DIAZEPAM
     Indication: Anxiety
     Dosage: 5 MG
     Route: 065
  2. DIAZEPAM [Suspect]
     Active Substance: DIAZEPAM
     Dosage: 2 MG
     Route: 065

REACTIONS (14)
  - Disability [Unknown]
  - Abdominal pain upper [Unknown]
  - Dependence [Unknown]
  - Sinusitis [Unknown]
  - Fall [Unknown]
  - Musculoskeletal stiffness [Unknown]
  - Hyperhidrosis [Unknown]
  - Depression [Unknown]
  - Feeling abnormal [Unknown]
  - Illness [Unknown]
  - Loss of personal independence in daily activities [Unknown]
  - Head injury [Unknown]
  - Crying [Unknown]
  - Drug ineffective [Unknown]
